FAERS Safety Report 21997290 (Version 1)
Quarter: 2023Q1

REPORT INFORMATION
  Report Type: Spontaneous
  Country: US (occurrence: US)
  Receive Date: 20230216
  Receipt Date: 20230216
  Transmission Date: 20230418
  Serious: Yes (Other)
  Sender: FDA-Public Use
  Company Number: US-STRIDES ARCOLAB LIMITED-2022SP017230

PATIENT
  Age: 47 Year
  Sex: Male

DRUGS (6)
  1. ETOPOSIDE [Suspect]
     Active Substance: ETOPOSIDE
     Indication: Testicular germ cell tumour
     Dosage: UNK
     Route: 065
     Dates: start: 2021, end: 2021
  2. ETOPOSIDE [Suspect]
     Active Substance: ETOPOSIDE
     Dosage: UNK UNK, CYCLICAL
     Route: 065
     Dates: start: 2021
  3. CISPLATIN [Suspect]
     Active Substance: CISPLATIN
     Indication: Testicular germ cell tumour
     Dosage: UNK UNK, CYCLICAL
     Route: 065
     Dates: start: 2021, end: 2021
  4. CISPLATIN [Suspect]
     Active Substance: CISPLATIN
     Dosage: UNK, CYCLICAL
     Route: 065
     Dates: start: 2021
  5. CARBOPLATIN [Suspect]
     Active Substance: CARBOPLATIN
     Indication: Testicular germ cell tumour
     Dosage: UNK
     Route: 065
     Dates: start: 2021, end: 2021
  6. BLEOMYCIN [Suspect]
     Active Substance: BLEOMYCIN SULFATE
     Indication: Testicular germ cell tumour
     Dosage: UNK UNK, CYCLICAL
     Route: 065
     Dates: start: 2021, end: 2021

REACTIONS (3)
  - Drug ineffective for unapproved indication [Unknown]
  - Nausea [Unknown]
  - Vomiting [Unknown]

NARRATIVE: CASE EVENT DATE: 20210101
